FAERS Safety Report 19395200 (Version 2)
Quarter: 2021Q2

REPORT INFORMATION
  Report Type: Spontaneous
  Country: BR (occurrence: BR)
  Receive Date: 20210609
  Receipt Date: 20210616
  Transmission Date: 20210717
  Serious: Yes (Death, Hospitalization)
  Sender: FDA-Public Use
  Company Number: BR-PFIZER INC-2021607053

PATIENT
  Sex: Female

DRUGS (1)
  1. XELJANZ [Suspect]
     Active Substance: TOFACITINIB CITRATE
     Indication: RHEUMATOID ARTHRITIS
     Dosage: 5 MG, 2X/DAY
     Dates: start: 2017

REACTIONS (6)
  - Pleural effusion [Fatal]
  - Deep vein thrombosis [Unknown]
  - Thrombosis [Unknown]
  - Herpes zoster [Unknown]
  - Pulmonary embolism [Unknown]
  - Pancreatic carcinoma [Fatal]
